FAERS Safety Report 9154261 (Version 1)
Quarter: 2013Q1

REPORT INFORMATION
  Report Type: Spontaneous
  Country: TR (occurrence: None)
  Receive Date: 20130207
  Receipt Date: 20130207
  Transmission Date: 20140127
  Serious: Yes (Life-Threatening)
  Sender: FDA-Public Use
  Company Number: 1590775

PATIENT
  Age: 48 Year
  Sex: Male

DRUGS (4)
  1. CALCIUM FOLINATE [Suspect]
     Indication: GASTRIC CANCER STAGE IV
  2. FLUOROURACIL [Suspect]
     Indication: GASTRIC CANCER STAGE IV
  3. IRINOTECAN [Concomitant]
  4. ANTIBIOTICS [Concomitant]

REACTIONS (7)
  - Disease progression [None]
  - Metastatic gastric cancer [None]
  - Tachycardia [None]
  - Ascites [None]
  - Left ventricular dysfunction [None]
  - Ventricular fibrillation [None]
  - Stress cardiomyopathy [None]
